FAERS Safety Report 9789531 (Version 2)
Quarter: 2014Q1

REPORT INFORMATION
  Report Type: Spontaneous
  Country: US (occurrence: US)
  Receive Date: 20131231
  Receipt Date: 20140211
  Transmission Date: 20141002
  Serious: No
  Sender: FDA-Public Use
  Company Number: US-BIOGENIDEC-2013BI123459

PATIENT
  Sex: Female

DRUGS (2)
  1. TYSABRI [Suspect]
     Indication: MULTIPLE SCLEROSIS
     Route: 042
     Dates: start: 20090501, end: 20100609
  2. TYSABRI [Suspect]
     Indication: MULTIPLE SCLEROSIS
     Route: 042
     Dates: start: 20110404

REACTIONS (5)
  - Poor venous access [Recovered/Resolved]
  - Depressed mood [Recovered/Resolved]
  - Injury [Recovered/Resolved]
  - Contusion [Unknown]
  - Infusion site bruising [Recovered/Resolved]
